FAERS Safety Report 4479832-X (Version None)
Quarter: 2004Q3

REPORT INFORMATION
  Report Type: 
  Country: None (occurrence: None)
  Receive Date: 20040923
  Receipt Date: 20040524
  Transmission Date: 20050211
  Serious: No
  Sender: FDA-Public Use
  Company Number: USA040568361

PATIENT
  Age: 67 Year
  Sex: Female

DRUGS (2)
  1. FORTEO [Suspect]
     Indication: OSTEOPENIA
     Dates: start: 20040511
  2. EVISTA [Suspect]
     Dates: start: 20031001, end: 20040422

REACTIONS (5)
  - AGITATION [None]
  - ANXIETY [None]
  - HYPERPHAGIA [None]
  - PSYCHOMOTOR HYPERACTIVITY [None]
  - WEIGHT INCREASED [None]
